FAERS Safety Report 4801767-0 (Version None)
Quarter: 2005Q4

REPORT INFORMATION
  Report Type: 
  Country: None (occurrence: None)
  Receive Date: 20051018
  Receipt Date: 20051004
  Transmission Date: 20060501
  Serious: Yes (Life-Threatening)
  Sender: FDA-Public Use
  Company Number: GB-GLAXOSMITHKLINE-B0396725A

PATIENT
  Age: 38 Year
  Sex: Male

DRUGS (2)
  1. NIQUITIN CQ 21MG [Suspect]
     Dosage: 21MG PER DAY
     Route: 062
     Dates: start: 20050817, end: 20050901
  2. LAMISIL [Concomitant]
     Route: 061
     Dates: start: 20041101

REACTIONS (2)
  - PSYCHOTIC DISORDER [None]
  - SUICIDE ATTEMPT [None]
